FAERS Safety Report 23053018 (Version 1)
Quarter: 2023Q4

REPORT INFORMATION
  Report Type: Spontaneous
  Country: US (occurrence: US)
  Receive Date: 20231011
  Receipt Date: 20231011
  Transmission Date: 20240110
  Serious: Yes (Other)
  Sender: FDA-Public Use
  Company Number: US-SA-SAC20231010000278

PATIENT
  Age: 43 Year
  Sex: Male

DRUGS (14)
  1. ALPROLIX [Suspect]
     Active Substance: EFTRENONACOG ALFA
     Indication: Factor IX deficiency
     Dosage: UNK
     Route: 065
     Dates: start: 202309
  2. ALPROLIX [Suspect]
     Active Substance: EFTRENONACOG ALFA
     Indication: Factor IX deficiency
     Dosage: UNK
     Route: 065
     Dates: start: 202309
  3. ALPROLIX [Suspect]
     Active Substance: EFTRENONACOG ALFA
     Dosage: 2 DF
  4. ALPROLIX [Suspect]
     Active Substance: EFTRENONACOG ALFA
     Dosage: 2 DF
  5. ALPROLIX [Suspect]
     Active Substance: EFTRENONACOG ALFA
     Dosage: 5080-6096 UNITS SLOW IV PUSH AS NEEDED FOR MINOR BLEEDS
     Route: 042
  6. ALPROLIX [Suspect]
     Active Substance: EFTRENONACOG ALFA
     Dosage: 5080-6096 UNITS SLOW IV PUSH AS NEEDED FOR MINOR BLEEDS
     Route: 042
  7. ALPROLIX [Suspect]
     Active Substance: EFTRENONACOG ALFA
     Dosage: 10160-12192 UNITS SLOW IV PUSH AS NEEDED FOR MAJOR BLEEDS
     Route: 042
  8. ALPROLIX [Suspect]
     Active Substance: EFTRENONACOG ALFA
     Dosage: 10160-12192 UNITS SLOW IV PUSH AS NEEDED FOR MAJOR BLEEDS
     Route: 042
  9. ALPROLIX [Suspect]
     Active Substance: EFTRENONACOG ALFA
     Dosage: 4064-5080 RCOF UNITS SLOW IV PUSH OVER 4 TO 5 MINUTES FOR TREATMENT OF BLEEDING
     Route: 042
  10. ALPROLIX [Suspect]
     Active Substance: EFTRENONACOG ALFA
     Dosage: 4064-5080 RCOF UNITS SLOW IV PUSH OVER 4 TO 5 MINUTES FOR TREATMENT OF BLEEDING
     Route: 042
  11. ALPROLIX [Suspect]
     Active Substance: EFTRENONACOG ALFA
     Dosage: 500 (UNIT NOT PROVIDED)
     Route: 042
  12. ALPROLIX [Suspect]
     Active Substance: EFTRENONACOG ALFA
     Dosage: 500 (UNIT NOT PROVIDED)
     Route: 042
  13. ALPROLIX [Suspect]
     Active Substance: EFTRENONACOG ALFA
     Dosage: 4000 (UNIT NOT PROVIDED)
     Route: 042
  14. ALPROLIX [Suspect]
     Active Substance: EFTRENONACOG ALFA
     Dosage: 4000 (UNIT NOT PROVIDED)
     Route: 042

REACTIONS (1)
  - Haemorrhage [Unknown]
